FAERS Safety Report 7625953-X (Version None)
Quarter: 2011Q3

REPORT INFORMATION
  Report Type: 
  Country: None (occurrence: None)
  Receive Date: 20110721
  Receipt Date: 20110721
  Transmission Date: 20111222
  Serious: Yes (Other)
  Sender: FDA-Public Use
  Company Number: None

PATIENT
  Sex: Male
  Weight: 68.038 kg

DRUGS (1)
  1. FINASTERIDE [Suspect]
     Indication: ALOPECIA
     Dosage: 1.25 MG
     Route: 048
     Dates: start: 20101022, end: 20101114

REACTIONS (4)
  - MENTAL DISORDER [None]
  - ERECTILE DYSFUNCTION [None]
  - TESTICULAR PAIN [None]
  - GROIN PAIN [None]
